FAERS Safety Report 10274655 (Version 3)
Quarter: 2014Q3

REPORT INFORMATION
  Report Type: Report from Study
  Country: US (occurrence: US)
  Receive Date: 20140702
  Receipt Date: 20140721
  Transmission Date: 20150326
  Serious: Yes (Hospitalization, Other)
  Sender: FDA-Public Use
  Company Number: US-ABBVIE-14P-163-1253510-00

PATIENT
  Age: 27 Year
  Sex: Male

DRUGS (4)
  1. CELEXA [Concomitant]
     Active Substance: CITALOPRAM HYDROBROMIDE
     Indication: PRODUCT USED FOR UNKNOWN INDICATION
  2. KLONOPIN [Concomitant]
     Active Substance: CLONAZEPAM
     Indication: PRODUCT USED FOR UNKNOWN INDICATION
  3. HUMIRA [Suspect]
     Active Substance: ADALIMUMAB
     Indication: CROHN^S DISEASE
     Dates: start: 201402
  4. LUNESTA [Concomitant]
     Active Substance: ESZOPICLONE
     Indication: PRODUCT USED FOR UNKNOWN INDICATION

REACTIONS (14)
  - Rectal perforation [Recovered/Resolved]
  - Shock [Recovering/Resolving]
  - Pyrexia [Recovered/Resolved]
  - Weight decreased [Unknown]
  - Diarrhoea [Unknown]
  - Gastrointestinal inflammation [Unknown]
  - Blood pressure decreased [Recovered/Resolved]
  - Sepsis [Unknown]
  - Crohn^s disease [Not Recovered/Not Resolved]
  - Heart rate increased [Recovered/Resolved]
  - Abdominal adhesions [Unknown]
  - Fistula [Unknown]
  - Increased appetite [Unknown]
  - Muscle spasms [Unknown]

NARRATIVE: CASE EVENT DATE: 201402
